FAERS Safety Report 20187702 (Version 2)
Quarter: 2022Q1

REPORT INFORMATION
  Report Type: Spontaneous
  Country: DE (occurrence: DE)
  Receive Date: 20211215
  Receipt Date: 20220107
  Transmission Date: 20220423
  Serious: Yes (Other)
  Sender: FDA-Public Use
  Company Number: DE-PFIZER INC-202101720222

PATIENT
  Age: 36 Year
  Sex: Female

DRUGS (1)
  1. DINOPROSTONE [Suspect]
     Active Substance: DINOPROSTONE
     Dosage: 2 MG

REACTIONS (7)
  - Haemorrhage [Unknown]
  - Post procedural haemorrhage [Unknown]
  - Overdose [Unknown]
  - Contraindicated product administered [Unknown]
  - Hysterectomy [Unknown]
  - Abnormal labour [Unknown]
  - Caesarean section [Unknown]
